FAERS Safety Report 8470252-X (Version None)
Quarter: 2012Q2

REPORT INFORMATION
  Report Type: 
  Country: None (occurrence: None)
  Receive Date: 20120627
  Receipt Date: 20120620
  Transmission Date: 20120825
  Serious: Yes (Other)
  Sender: FDA-Public Use
  Company Number: US-JNJFOC-20120302138

PATIENT
  Sex: Female

DRUGS (4)
  1. CHANTIX [Suspect]
     Indication: SMOKING CESSATION THERAPY
     Route: 065
     Dates: start: 20120201, end: 20120401
  2. CHANTIX [Suspect]
     Route: 065
     Dates: start: 20120603
  3. LEVAQUIN [Suspect]
     Indication: PRODUCT USED FOR UNKNOWN INDICATION
     Route: 065
     Dates: start: 20111201
  4. CHANTIX [Suspect]
     Route: 065

REACTIONS (5)
  - PELVIC FRACTURE [None]
  - PNEUMONIA [None]
  - MALAISE [None]
  - TRANSIENT ISCHAEMIC ATTACK [None]
  - ADVERSE DRUG REACTION [None]
